FAERS Safety Report 22617208 (Version 3)
Quarter: 2024Q2

REPORT INFORMATION
  Report Type: Report from Study
  Country: US (occurrence: US)
  Receive Date: 20230620
  Receipt Date: 20240509
  Transmission Date: 20240716
  Serious: Yes (Other)
  Sender: FDA-Public Use
  Company Number: US-ABBVIE-5295273

PATIENT
  Age: 64 Year
  Sex: Male
  Weight: 90 kg

DRUGS (25)
  1. VENCLEXTA [Suspect]
     Active Substance: VENETOCLAX
     Indication: Acute myelomonocytic leukaemia
     Dosage: FORM STRENGTH: 100 MG
     Route: 048
     Dates: start: 20230606
  2. VENCLEXTA [Suspect]
     Active Substance: VENETOCLAX
     Indication: Acute myelomonocytic leukaemia
     Dosage: FORM STRENGTH: 100 MG
     Route: 048
     Dates: start: 202304
  3. VENCLEXTA [Suspect]
     Active Substance: VENETOCLAX
     Indication: Acute myelomonocytic leukaemia
     Dosage: FORM STRENGTH: 100 MG
     Route: 048
     Dates: start: 20220314
  4. VENCLEXTA [Suspect]
     Active Substance: VENETOCLAX
     Indication: Acute myelomonocytic leukaemia
     Dosage: FORM STRENGTH: 100 MG
     Route: 048
     Dates: start: 20220315, end: 20220315
  5. ASPIRIN [Concomitant]
     Active Substance: ASPIRIN
     Indication: Product used for unknown indication
     Dosage: TAKE 1 TAB BY MOUTH AS NEEDED.?FORM STRENGTH: 325 MG
     Route: 048
  6. LIDODERM [Concomitant]
     Active Substance: LIDOCAINE
     Indication: Product used for unknown indication
     Dosage: PLACE 1 PATCH ONTO THE SKIN DAILY.?FORM STRENGTH: 5 PERCENT
     Route: 062
  7. ZOVIRAX [Concomitant]
     Active Substance: ACYCLOVIR
     Indication: Product used for unknown indication
     Dosage: TAKE BY MOUTH.?FORM STRENGTH: 800 MG
     Route: 048
  8. EMLA [Concomitant]
     Active Substance: LIDOCAINE\PRILOCAINE
     Indication: Pain
     Dosage: APPLY 1 G TOPICALLY DAILY AS NEEDED FOR PAIN DO NOT APPLY NEAR EYES OR OPEN WOUND.  DO NOT EXCEED...
     Route: 061
  9. KLOR-CON M20 [Concomitant]
     Active Substance: POTASSIUM CHLORIDE
     Indication: Product used for unknown indication
     Dosage: FORM STRENGTH: 20 MILLIEQUIVALENTS
     Route: 048
  10. SENOKOT-S [Concomitant]
     Active Substance: DOCUSATE SODIUM\SENNOSIDES
     Indication: Product used for unknown indication
     Dosage: 8.6-50 MG ORAL TABLET, TAKE 1 TAB BY MOUTH TWO TIMES DAILY
     Route: 048
  11. AZACITIDINE [Concomitant]
     Active Substance: AZACITIDINE
     Indication: Product used for unknown indication
     Dosage: CYCLE 1
     Route: 065
     Dates: start: 20220314
  12. Dialyvite vitamin d3 max [Concomitant]
     Indication: Product used for unknown indication
     Dosage: TAKE 1 TABLET (50,000 UNITS TOTAL) BY MOUTH ONCE A WEEK, FORM STRENGTH: 1250 MG
     Route: 048
  13. LEVAQUIN [Concomitant]
     Active Substance: LEVOFLOXACIN
     Indication: Product used for unknown indication
     Dosage: TAKE 1 (ONE) TABLET (500 MG TOTAL) BY MOUTH ONCE EVERY 24 HOURS AT  SAME TIME EVERY DAY.?FORM STR...
     Route: 048
  14. PERIDEX [Concomitant]
     Active Substance: CHLORHEXIDINE GLUCONATE
     Indication: Product used for unknown indication
     Dosage: SOLUTION, FORM STRENGTH: 0.12 PERCENT
     Route: 065
  15. TYLENOL [Concomitant]
     Active Substance: ACETAMINOPHEN
     Indication: Pain
     Dosage: TAKE 1-2 TABS BY MOUTH EVERY SIX HOURS AS NEEDED (PAIN OR GREATER THAN 38.5  DEGREES C)?FORM STRE...
     Route: 048
  16. NOXAFIL [Concomitant]
     Active Substance: POSACONAZOLE
     Indication: Antifungal prophylaxis
     Dosage: TAKE 3 TABLETS BY MOUTH ONCE DAILY. FORM STRENGTH: 100 MG
     Route: 048
  17. ROXICODONE [Concomitant]
     Active Substance: OXYCODONE HYDROCHLORIDE
     Indication: Pain
     Dosage: TAKE 1-3 TABS BY MOULTH EVERY THREE HOURS AS NEEDED FOR SEVERE PAIN.?FORM STRENGTH: 5 MG
     Route: 048
  18. LISINOPRIL [Concomitant]
     Active Substance: LISINOPRIL
     Indication: Product used for unknown indication
     Dosage: FORM STRENGTH: 10 MG, TAKE 10 MG BY MOUTH
     Route: 048
  19. IMODIUM [Concomitant]
     Active Substance: LOPERAMIDE HYDROCHLORIDE
     Indication: Product used for unknown indication
     Dosage: FORM STRENGTH: 2 MG, TAKE BY MOUTH
     Route: 048
  20. MIRALAX [Concomitant]
     Active Substance: POLYETHYLENE GLYCOL 3350
     Indication: Constipation
     Dosage: 17 G, CONTINUE TAKING DAILY UNTIL YOU HAVE A BOWEL  MOVEMENT STOP FOR ANY DIARRHEA.?FORM STRENGTH...
     Route: 048
  21. VIDAZA [Concomitant]
     Active Substance: AZACITIDINE
     Indication: Product used for unknown indication
     Route: 065
     Dates: start: 20221017, end: 20221021
  22. VITAMIN D [Concomitant]
     Active Substance: VITAMIN D NOS
     Indication: Product used for unknown indication
     Dosage: TAKE 1000 INT^L UNITS BY MOUTH ONCE DAILY
     Route: 048
  23. FLEXERIL [Concomitant]
     Active Substance: CYCLOBENZAPRINE HYDROCHLORIDE
     Indication: Muscle spasms
     Dosage: TIME INTERVAL: 0.33333333 DAYS: TAKE 1 TABLET (10 MG TOTAL) BY MOUTH 3 (THREE) TIMES DAILY. DO NO...
     Route: 048
  24. MS CONTIN [Concomitant]
     Active Substance: MORPHINE SULFATE
     Indication: Product used for unknown indication
     Dosage: 15 MG 12 HR TABLET, FORM STRENGTH: 15 MG
     Route: 048
  25. COREG [Concomitant]
     Active Substance: CARVEDILOL
     Indication: Product used for unknown indication
     Dosage: TAKE 1 TABLET (6.25 MG TOTAL) BY MOUTH 2 (TWO) TIMES DAILY WITH MEALS.?FORM STRENGTH: 6.25 MG
     Route: 048

REACTIONS (21)
  - Pancytopenia [Recovered/Resolved]
  - Dyspnoea exertional [Unknown]
  - Fatigue [Unknown]
  - Anaemia [Not Recovered/Not Resolved]
  - White blood cell count decreased [Not Recovered/Not Resolved]
  - Vitamin D deficiency [Unknown]
  - Diarrhoea [Recovering/Resolving]
  - Pancytopenia [Unknown]
  - Cytopenia [Not Recovered/Not Resolved]
  - Unevaluable event [Unknown]
  - Immunodeficiency [Unknown]
  - Back pain [Unknown]
  - Neutropenia [Unknown]
  - Thrombocytopenia [Recovering/Resolving]
  - Depressed mood [Unknown]
  - Retinal operation [Unknown]
  - Oral pain [Unknown]
  - Unevaluable event [Unknown]
  - Off label use [Unknown]
  - Rash [Unknown]
  - Tooth extraction [Unknown]

NARRATIVE: CASE EVENT DATE: 20220421
